FAERS Safety Report 16770829 (Version 3)
Quarter: 2024Q3

REPORT INFORMATION
  Report Type: Report from Study
  Country: JP (occurrence: JP)
  Receive Date: 20190904
  Receipt Date: 20240823
  Transmission Date: 20241017
  Serious: Yes (Death, Other)
  Sender: AMGEN
  Company Number: JP-KYOWAKIRIN-2017JPN-NSP000017

PATIENT
  Age: 62 Year
  Sex: Male

DRUGS (12)
  1. DARBEPOETIN ALFA [Suspect]
     Active Substance: DARBEPOETIN ALFA
     Indication: Myelodysplastic syndrome
     Dosage: 120 MICROGRAM, QWK
     Route: 058
     Dates: start: 20150526, end: 20150915
  2. DARBEPOETIN ALFA [Suspect]
     Active Substance: DARBEPOETIN ALFA
     Dosage: 120 MICROGRAM, QWK
     Route: 058
     Dates: start: 20150929, end: 20160419
  3. CALCIUM POLYSTYRENE SULFONATE [Concomitant]
     Active Substance: CALCIUM POLYSTYRENE SULFONATE
     Indication: Hyperkalaemia
     Dosage: 25 GRAM
     Route: 048
  4. Amlodipine Ratiopharm [Concomitant]
     Indication: Hypertension
     Dosage: 5 MILLIGRAM
     Route: 048
     Dates: end: 20151005
  5. Calfina [Concomitant]
     Indication: Osteoporosis
     Dosage: 0.5 MICROGRAM
     Route: 048
     Dates: end: 20151005
  6. FEBUXOSTAT [Concomitant]
     Active Substance: FEBUXOSTAT
     Indication: Gout
     Dosage: 10 MILLIGRAM
     Route: 048
  7. FUROSEMIDE [Concomitant]
     Active Substance: FUROSEMIDE
     Indication: Chronic kidney disease
     Dosage: 20 MILLIGRAM
     Route: 048
  8. METHYLCOBALAMIN [Concomitant]
     Active Substance: METHYLCOBALAMIN
     Indication: Neuropathy peripheral
     Dosage: 1.5 MILLIGRAM
     Route: 048
  9. CALCIUM CARBONATE [Concomitant]
     Active Substance: CALCIUM CARBONATE
     Indication: Hypocalcaemia
     Dosage: 1500 MILLIGRAM
     Route: 048
  10. CEFMETAZOLE [Concomitant]
     Active Substance: CEFMETAZOLE
     Indication: Pneumonia
     Dosage: 2 GRAM
     Route: 065
     Dates: start: 20150616, end: 20150624
  11. AMEZINIUM METILSULFATE [Concomitant]
     Active Substance: AMEZINIUM METILSULFATE
     Indication: Dialysis hypotension
     Dosage: 10 MILLIGRAM
     Route: 048
     Dates: start: 20150928
  12. MEROPENEM [Concomitant]
     Active Substance: MEROPENEM
     Indication: Pneumonia
     Dosage: 1 GRAM
     Route: 065
     Dates: start: 20160423, end: 20160507

REACTIONS (3)
  - Myelodysplastic syndrome [Fatal]
  - Pneumonia [Recovered/Resolved]
  - Pneumonia [Recovered/Resolved]

NARRATIVE: CASE EVENT DATE: 20150616
